FAERS Safety Report 6763344-4 (Version None)
Quarter: 2010Q2

REPORT INFORMATION
  Report Type: 
  Country: None (occurrence: None)
  Receive Date: 20100610
  Receipt Date: 20100524
  Transmission Date: 20101027
  Serious: Yes (Other)
  Sender: FDA-Public Use
  Company Number: US-BAYER-201023425NA

PATIENT
  Age: 41 Year
  Sex: Female

DRUGS (1)
  1. MIRENA [Suspect]
     Indication: MENORRHAGIA
     Dosage: FREQUENCY: CONTINUOUS
     Route: 015
     Dates: start: 20090401

REACTIONS (5)
  - BLOOD GLUCOSE INCREASED [None]
  - BURNING SENSATION [None]
  - NEUROPATHY PERIPHERAL [None]
  - PAIN [None]
  - PROCEDURAL PAIN [None]
